FAERS Safety Report 4341029-1 (Version None)
Quarter: 2004Q2

REPORT INFORMATION
  Report Type: 
  Country: None (occurrence: None)
  Receive Date: 20040413
  Receipt Date: 20040402
  Transmission Date: 20050107
  Serious: Yes (Hospitalization)
  Sender: FDA-Public Use
  Company Number: US-JNJFOC-20031102534

PATIENT
  Age: 79 Year
  Sex: Male

DRUGS (9)
  1. DURAGESIC [Suspect]
     Indication: PAIN
     Dosage: 25 + 50UG/HR, 1 IN 72 HOUR, TRANSDERMAL
     Route: 062
     Dates: start: 20030901, end: 20031104
  2. DURAGESIC [Suspect]
     Indication: PAIN
     Dosage: 25 + 50UG/HR, 1 IN 72 HOUR, TRANSDERMAL
     Route: 062
     Dates: start: 20031104, end: 20031105
  3. NEURONTIN [Concomitant]
  4. CARDURA [Concomitant]
  5. LOTENSIN [Concomitant]
  6. HYDROCHLOROTHIAZIDE [Concomitant]
  7. MOBIC [Concomitant]
  8. NEXIUM [Concomitant]
  9. AMBIEN [Concomitant]

REACTIONS (2)
  - DEHYDRATION [None]
  - DYSPEPSIA [None]
